FAERS Safety Report 23313917 (Version 1)
Quarter: 2023Q4

REPORT INFORMATION
  Report Type: Spontaneous
  Country: US (occurrence: US)
  Receive Date: 20231219
  Receipt Date: 20231219
  Transmission Date: 20240110
  Serious: Yes (Other)
  Sender: FDA-Public Use
  Company Number: US-AMGEN-USASP2023224203

PATIENT
  Age: 48 Year
  Sex: Female

DRUGS (1)
  1. BEVACIZUMAB [Suspect]
     Active Substance: BEVACIZUMAB
     Indication: Congenital retinoblastoma
     Dosage: UNK
     Route: 065
     Dates: start: 2020

REACTIONS (2)
  - Pseudolymphoma [Unknown]
  - Off label use [Unknown]
